FAERS Safety Report 6159554-X (Version None)
Quarter: 2009Q2

REPORT INFORMATION
  Report Type: 
  Country: None (occurrence: None)
  Receive Date: 20090420
  Receipt Date: 20090413
  Transmission Date: 20091009
  Serious: Yes (Hospitalization, Disabling, Other)
  Sender: FDA-Public Use
  Company Number: US-JNJFOC-20090403839

PATIENT
  Sex: Female
  Weight: 95.26 kg

DRUGS (4)
  1. DURAGESIC-100 [Suspect]
     Indication: BACK PAIN
     Route: 062
  2. DURAGESIC-100 [Suspect]
     Indication: NERVE INJURY
     Route: 062
  3. PAXIL CR [Concomitant]
     Indication: DEPRESSION
     Route: 048
  4. XANAX [Concomitant]
     Indication: NEUROPATHY PERIPHERAL
     Dosage: AS NEEDED
     Route: 048

REACTIONS (1)
  - CEREBROVASCULAR ACCIDENT [None]
